FAERS Safety Report 5779720-2 (Version None)
Quarter: 2008Q2

REPORT INFORMATION
  Report Type: 
  Country: None (occurrence: None)
  Receive Date: 20080619
  Receipt Date: 20080609
  Transmission Date: 20081010
  Serious: Yes (Other)
  Sender: FDA-Public Use
  Company Number: GB-ABBOTT-08P-167-0456585-00

PATIENT
  Sex: Male

DRUGS (17)
  1. HUMIRA [Suspect]
     Indication: CROHN'S DISEASE
  2. BUDESONIDE [Concomitant]
     Indication: CROHN'S DISEASE
     Route: 048
  3. MESALAMINE [Concomitant]
     Indication: CROHN'S DISEASE
     Route: 048
  4. ATENOLOL [Concomitant]
     Indication: MYOCARDIAL ISCHAEMIA
  5. ATENOLOL [Concomitant]
     Route: 048
  6. ASPIRIN [Concomitant]
     Indication: MYOCARDIAL ISCHAEMIA
  7. ASPIRIN [Concomitant]
     Route: 048
  8. PANTOPRAZOLE SODIUM [Concomitant]
     Indication: MYOCARDIAL ISCHAEMIA
     Route: 048
  9. RAMIPRIL [Concomitant]
     Indication: MYOCARDIAL ISCHAEMIA
     Route: 048
  10. HYOSCINE HBR HYT [Concomitant]
     Indication: CROHN'S DISEASE
  11. ISOSORBATE MONONITRATE [Concomitant]
     Indication: MYOCARDIAL ISCHAEMIA
     Route: 048
  12. NICORANDIL [Concomitant]
     Indication: MYOCARDIAL ISCHAEMIA
  13. AMITRIPTYLINE HCL [Concomitant]
     Indication: DRUG USE FOR UNKNOWN INDICATION
  14. TAMSULOSIN HCL [Concomitant]
     Indication: URINARY RETENTION
  15. VIT B12 [Concomitant]
     Indication: DRUG USE FOR UNKNOWN INDICATION
     Dosage: INJECTIONS EVERY 3 MONTHS
     Route: 030
  16. ERGOCALCIFEROL [Concomitant]
     Indication: DRUG USE FOR UNKNOWN INDICATION
  17. CALCIUM [Concomitant]
     Indication: DRUG USE FOR UNKNOWN INDICATION

REACTIONS (1)
  - CARDIAC FAILURE [None]
